FAERS Safety Report 6970254-6 (Version None)
Quarter: 2010Q3

REPORT INFORMATION
  Report Type: 
  Country: None (occurrence: None)
  Receive Date: 20100908
  Receipt Date: 20100825
  Transmission Date: 20110219
  Serious: Yes (Hospitalization)
  Sender: FDA-Public Use
  Company Number: PHHY2010MX56441

PATIENT
  Sex: Female

DRUGS (3)
  1. DIOVAN HCT [Suspect]
     Indication: HYPERTENSION
     Dosage: 160/25 MG(01 TABLET DAILY)
     Route: 048
     Dates: start: 20090801
  2. DIABET [Concomitant]
  3. KEFLEX [Concomitant]

REACTIONS (1)
  - HYSTERECTOMY [None]
